FAERS Safety Report 11391347 (Version 1)
Quarter: 2015Q3

REPORT INFORMATION
  Report Type: Spontaneous
  Country: US (occurrence: None)
  Receive Date: 20150814
  Receipt Date: 20150814
  Transmission Date: 20151125
  Serious: Yes (Other)
  Sender: FDA-Public Use
  Company Number: None

PATIENT
  Age: 51 Year
  Sex: Male
  Weight: 86.18 kg

DRUGS (8)
  1. XARELTO [Suspect]
     Active Substance: RIVAROXABAN
     Indication: PULMONARY EMBOLISM
     Dosage: 1 PILL
     Route: 048
  2. LISINOPRIL. [Concomitant]
     Active Substance: LISINOPRIL
  3. SIMVASTATIN. [Concomitant]
     Active Substance: SIMVASTATIN
  4. CALCIUM [Concomitant]
     Active Substance: CALCIUM
  5. MILK THISTLE [Concomitant]
     Active Substance: MILK THISTLE
  6. TURMERIC [Concomitant]
     Active Substance: TURMERIC
  7. FISH OIL [Concomitant]
     Active Substance: FISH OIL
  8. MULTI VITAMIN [Concomitant]
     Active Substance: VITAMINS

REACTIONS (5)
  - Headache [None]
  - Muscular weakness [None]
  - Paraesthesia [None]
  - Hypoaesthesia [None]
  - Fatigue [None]

NARRATIVE: CASE EVENT DATE: 20150813
